FAERS Safety Report 7675843-1 (Version None)
Quarter: 2011Q3

REPORT INFORMATION
  Report Type: 
  Country: None (occurrence: None)
  Receive Date: 20110810
  Receipt Date: 20110801
  Transmission Date: 20111222
  Serious: Yes (Hospitalization, Other)
  Sender: FDA-Public Use
  Company Number: US-ASTRAZENECA-2010SE33607

PATIENT
  Age: 63 Year
  Sex: Female

DRUGS (1)
  1. NEXIUM [Suspect]
     Route: 048

REACTIONS (12)
  - RHEUMATOID ARTHRITIS [None]
  - DYSPHONIA [None]
  - DRUG DOSE OMISSION [None]
  - ADVERSE EVENT [None]
  - GASTROOESOPHAGEAL REFLUX DISEASE [None]
  - INTERVERTEBRAL DISC PROTRUSION [None]
  - SURGERY [None]
  - NECK EXPLORATION [None]
  - ADVERSE DRUG REACTION [None]
  - ARTHRITIS [None]
  - OSTEOARTHRITIS [None]
  - NECK DEFORMITY [None]
